FAERS Safety Report 5913916-1 (Version None)
Quarter: 2008Q4

REPORT INFORMATION
  Report Type: 
  Country: None (occurrence: None)
  Receive Date: 20081009
  Receipt Date: 20081006
  Transmission Date: 20090506
  Serious: Yes (Hospitalization)
  Sender: FDA-Public Use
  Company Number: B0540190A

PATIENT
  Age: 30 Year
  Sex: Female
  Weight: 60 kg

DRUGS (16)
  1. FLOLAN [Suspect]
     Route: 042
     Dates: start: 20040701
  2. WARFARIN SODIUM [Concomitant]
     Route: 048
  3. FUROSEMIDE [Concomitant]
     Route: 048
  4. PREDONINE [Concomitant]
     Route: 048
  5. DOBUTAMINE HCL [Concomitant]
     Route: 042
  6. IMURAN [Concomitant]
     Route: 048
  7. JUVELA NICOTINATE [Concomitant]
     Route: 048
  8. FAMOTIDINE [Concomitant]
     Route: 048
  9. SELBEX [Concomitant]
     Route: 048
  10. GANATON [Concomitant]
     Route: 048
  11. VOLTAREN [Concomitant]
     Route: 048
  12. SILECE [Concomitant]
     Route: 048
  13. LENDORMIN [Concomitant]
     Route: 048
  14. CARBENIN [Concomitant]
     Route: 042
     Dates: start: 20040811, end: 20040818
  15. HABEKACIN [Concomitant]
     Dates: start: 20040819, end: 20040829
  16. TARGOCID [Concomitant]
     Route: 042
     Dates: start: 20040829, end: 20041031

REACTIONS (4)
  - C-REACTIVE PROTEIN INCREASED [None]
  - CATHETER RELATED INFECTION [None]
  - CATHETER SITE ERYTHEMA [None]
  - CATHETER SITE OEDEMA [None]
